FAERS Safety Report 8065785 (Version 12)
Quarter: 2013Q1

REPORT INFORMATION
  Report Type: Spontaneous
  Country: US (occurrence: US)
  Receive Date: 20110802
  Receipt Date: 20130318
  Transmission Date: 20140127
  Serious: Yes (Disabling, Other)
  Sender: FDA-Public Use
  Company Number: US-009507513-1107USA03603

PATIENT
  Sex: Female
  Weight: 58.97 kg

DRUGS (6)
  1. FOSAMAX [Suspect]
     Dosage: 10 MG, QD
     Route: 048
     Dates: start: 199509
  2. FOSAMAX [Suspect]
     Dosage: UNK
     Route: 048
     Dates: start: 199511, end: 200907
  3. FOSAMAX [Suspect]
     Dosage: 70 MG, QW
  4. FOSAMAX [Suspect]
     Dosage: 10 MG, UNK
     Route: 048
     Dates: start: 20080406
  5. PREMARIN [Concomitant]
     Indication: ARTIFICIAL MENOPAUSE
     Dosage: 1.25 MG, UNK
  6. PROVERA [Concomitant]
     Indication: ARTIFICIAL MENOPAUSE

REACTIONS (19)
  - Osteonecrosis of jaw [Not Recovered/Not Resolved]
  - Jaw disorder [Unknown]
  - Eye disorder [Unknown]
  - Periodontal disease [Unknown]
  - Gingival bleeding [Unknown]
  - Rhinitis allergic [Unknown]
  - Gingival injury [Unknown]
  - Blood cholesterol increased [Unknown]
  - Abscess [Unknown]
  - Foot fracture [Unknown]
  - Weight increased [Unknown]
  - Fracture [Unknown]
  - Retinal tear [Unknown]
  - Retinal detachment [Unknown]
  - Myopia [Unknown]
  - Presbyopia [Unknown]
  - Mucocutaneous flap operation [Unknown]
  - Tooth disorder [Unknown]
  - Bone graft [Unknown]
